FAERS Safety Report 23131264 (Version 4)
Quarter: 2025Q1

REPORT INFORMATION
  Report Type: Report from Study
  Country: US (occurrence: US)
  Receive Date: 20231031
  Receipt Date: 20250312
  Transmission Date: 20250408
  Serious: Yes (Other)
  Sender: SANOFI AVENTIS
  Company Number: US-SA-SAC20231027001594

PATIENT
  Age: 61 Year
  Sex: Female
  Weight: 93.424 kg

DRUGS (16)
  1. DUPIXENT [Suspect]
     Active Substance: DUPILUMAB
     Indication: Immunodeficiency common variable
     Dosage: 200 MG, QOW
     Route: 058
     Dates: start: 20200911
  2. DUPIXENT [Suspect]
     Active Substance: DUPILUMAB
     Indication: Asthma
  3. DUPIXENT [Suspect]
     Active Substance: DUPILUMAB
     Indication: Immunodeficiency common variable
     Dosage: 200 MG, QOW
     Route: 058
  4. DUPIXENT [Suspect]
     Active Substance: DUPILUMAB
     Indication: Asthma
  5. TRAMADOL HCL [Concomitant]
     Active Substance: TRAMADOL HYDROCHLORIDE
  6. SYMBICORT [Concomitant]
     Active Substance: BUDESONIDE\FORMOTEROL FUMARATE DIHYDRATE
  7. MONTELUKAST SODIUM [Concomitant]
     Active Substance: MONTELUKAST SODIUM
  8. OMEPRAZOLE [Concomitant]
     Active Substance: OMEPRAZOLE
  9. ONDANSETRON HYDROCHLORIDE [Concomitant]
     Active Substance: ONDANSETRON HYDROCHLORIDE
  10. ALBUTEROL SULFATE [Concomitant]
     Active Substance: ALBUTEROL SULFATE
  11. VITAMIN D3 [Concomitant]
     Active Substance: CHOLECALCIFEROL
  12. VALSARTAN [Concomitant]
     Active Substance: VALSARTAN
  13. LEVOTHYROXINE SODIUM [Concomitant]
     Active Substance: LEVOTHYROXINE SODIUM
  14. AMLODIPINE BESYLATE [Concomitant]
     Active Substance: AMLODIPINE BESYLATE
  15. OXYGEN [Concomitant]
     Active Substance: OXYGEN
  16. ALBUTEROL SULFATE [Concomitant]
     Active Substance: ALBUTEROL SULFATE

REACTIONS (8)
  - Pneumothorax [Unknown]
  - Product dose omission issue [Unknown]
  - Dyspnoea [Unknown]
  - Speech disorder [Unknown]
  - Cough [Unknown]
  - Injection site pain [Unknown]
  - Injection site bruising [Unknown]
  - Product use in unapproved indication [Unknown]
